FAERS Safety Report 23182376 (Version 1)
Quarter: 2023Q4

REPORT INFORMATION
  Report Type: Spontaneous
  Country: US (occurrence: US)
  Receive Date: 20231114
  Receipt Date: 20231114
  Transmission Date: 20240109
  Serious: Yes (Death)
  Sender: FDA-Public Use
  Company Number: US-UPSHER-SMITH LABORATORIES, LLC-2023USL00930

PATIENT
  Age: 3 Year

DRUGS (1)
  1. VIGADRONE [Suspect]
     Active Substance: VIGABATRIN
     Indication: Infantile spasms
     Dosage: 1000 MG (20 ML) BY MOUTH EVERY MORNING AND 1150 MG (23 ML) EVERY EVENING
     Route: 048
     Dates: start: 20230210

REACTIONS (1)
  - Death [Fatal]

NARRATIVE: CASE EVENT DATE: 20231022
